FAERS Safety Report 7480847-8 (Version None)
Quarter: 2011Q2

REPORT INFORMATION
  Report Type: 
  Country: None (occurrence: None)
  Receive Date: 20110512
  Receipt Date: 20110512
  Transmission Date: 20111010
  Serious: Yes (Other)
  Sender: FDA-Public Use
  Company Number: None

PATIENT
  Sex: Female

DRUGS (1)
  1. LANTUS [Suspect]
     Dosage: 78 UNITS 1 Q EVENING STOMACH STARTED IN AUG 2010

REACTIONS (10)
  - DYSPNOEA [None]
  - DIZZINESS [None]
  - GAIT DISTURBANCE [None]
  - VOMITING [None]
  - NASOPHARYNGITIS [None]
  - PAIN [None]
  - ASTHENIA [None]
  - EMOTIONAL DISORDER [None]
  - MYALGIA [None]
  - FATIGUE [None]
